FAERS Safety Report 15490244 (Version 1)
Quarter: 2018Q4

REPORT INFORMATION
  Report Type: Spontaneous
  Country: FR (occurrence: FR)
  Receive Date: 20181011
  Receipt Date: 20181011
  Transmission Date: 20190205
  Serious: Yes (Death)
  Sender: FDA-Public Use
  Company Number: FR-SANIK-2018SA278037AA

PATIENT
  Age: 87 Year
  Sex: Male

DRUGS (3)
  1. ELIQUIS [Suspect]
     Active Substance: APIXABAN
     Indication: MYOCARDIAL ISCHAEMIA
     Dosage: 5 MG, QD
     Route: 048
     Dates: start: 2017, end: 20180113
  2. PLAVIX [Suspect]
     Active Substance: CLOPIDOGREL BISULFATE
     Indication: MYOCARDIAL ISCHAEMIA
     Dosage: 75 MG, QD
     Route: 048
     Dates: start: 2008, end: 20180113
  3. KARDEGIC [Suspect]
     Active Substance: ASPIRIN DL-LYSINE
     Indication: MYOCARDIAL ISCHAEMIA
     Dosage: 75 MG, QD
     Route: 048
     Dates: start: 2008, end: 20180113

REACTIONS (2)
  - Haemorrhagic anaemia [Fatal]
  - Melaena [Fatal]

NARRATIVE: CASE EVENT DATE: 20180109
